FAERS Safety Report 5892561-0 (Version None)
Quarter: 2008Q3

REPORT INFORMATION
  Report Type: 
  Country: None (occurrence: None)
  Receive Date: 20080919
  Receipt Date: 20080905
  Transmission Date: 20090109
  Serious: Yes (Hospitalization, Disabling)
  Sender: FDA-Public Use
  Company Number: 2008S1016160

PATIENT
  Age: 57 Year
  Sex: Female

DRUGS (4)
  1. NITROFURANTOIN MONOHYDRATE/MACROCRYSTALS [Suspect]
     Indication: URINARY TRACT INFECTION
     Dosage: 100 MG;Q12H;ORAL
     Route: 048
     Dates: start: 20080501, end: 20080501
  2. ATENOLOL [Concomitant]
  3. LIPITOR [Concomitant]
  4. PREMARIN [Concomitant]

REACTIONS (5)
  - GAIT DISTURBANCE [None]
  - HYPOAESTHESIA [None]
  - NEUROPATHY PERIPHERAL [None]
  - PAIN IN EXTREMITY [None]
  - PARAESTHESIA [None]
